FAERS Safety Report 24834379 (Version 1)
Quarter: 2025Q1

REPORT INFORMATION
  Report Type: Spontaneous
  Country: IT (occurrence: IT)
  Receive Date: 20250113
  Receipt Date: 20250113
  Transmission Date: 20250408
  Serious: Yes (Hospitalization, Disabling)
  Sender: MYLAN
  Company Number: None

PATIENT
  Age: 67 Year
  Sex: Female
  Weight: 65 kg

DRUGS (2)
  1. TRANEXAMIC ACID [Suspect]
     Active Substance: TRANEXAMIC ACID
     Indication: Haemorrhage
     Route: 042
     Dates: start: 20241206, end: 20241206
  2. KEDCOM [Suspect]
     Active Substance: COAGULATION FACTOR X HUMAN\FACTOR IX COMPLEX\PROTHROMBIN
     Indication: Haemorrhage
     Route: 042
     Dates: start: 20241206, end: 20241206

REACTIONS (1)
  - Ischaemic stroke [Recovered/Resolved with Sequelae]

NARRATIVE: CASE EVENT DATE: 20241206
